FAERS Safety Report 11170005 (Version 1)
Quarter: 2015Q2

REPORT INFORMATION
  Report Type: Spontaneous
  Country: US (occurrence: US)
  Receive Date: 20150608
  Receipt Date: 20150608
  Transmission Date: 20150821
  Serious: No
  Sender: FDA-Public Use
  Company Number: US-ASTRAZENECA-2015SE52362

PATIENT
  Age: 84 Year
  Sex: Male

DRUGS (3)
  1. STATINS [Suspect]
     Active Substance: UNSPECIFIED INGREDIENT
     Dosage: HALF A TABLET OF GENERIC STATINS
     Route: 065
  2. CRESTOR [Suspect]
     Active Substance: ROSUVASTATIN CALCIUM
     Route: 048
  3. STATINS [Suspect]
     Active Substance: UNSPECIFIED INGREDIENT
     Dosage: GENERIC
     Route: 065

REACTIONS (4)
  - Headache [Unknown]
  - Intentional product misuse [Unknown]
  - Drug ineffective [Unknown]
  - Musculoskeletal pain [Unknown]
